FAERS Safety Report 21754864 (Version 2)
Quarter: 2023Q1

REPORT INFORMATION
  Report Type: Spontaneous
  Country: US (occurrence: US)
  Receive Date: 20221220
  Receipt Date: 20230110
  Transmission Date: 20230417
  Serious: Yes (Hospitalization)
  Sender: FDA-Public Use
  Company Number: US-TEVA-2022-US-2837388

PATIENT
  Age: 50 Year
  Sex: Male

DRUGS (2)
  1. VALPROIC ACID [Suspect]
     Active Substance: VALPROIC ACID
     Indication: Seizure
     Dosage: 3000 MILLIGRAM DAILY;
     Route: 065
  2. VALPROIC ACID [Suspect]
     Active Substance: VALPROIC ACID
     Dosage: 3500 MILLIGRAM DAILY; ADDITIONAL INFO: ACTION TAKEN: INITIALLY DOSE INCREASED THEN DISCONTINUED.
     Route: 065

REACTIONS (1)
  - Neurotoxicity [Recovering/Resolving]
